FAERS Safety Report 5082048-X (Version None)
Quarter: 2006Q3

REPORT INFORMATION
  Report Type: 
  Country: None (occurrence: None)
  Receive Date: 20060817
  Receipt Date: 20060621
  Transmission Date: 20061208
  Serious: Yes (Death, Life-Threatening)
  Sender: FDA-Public Use
  Company Number: JP-AVENTIS-200612244JP

PATIENT
  Age: 62 Year
  Sex: Male
  Weight: 72.8 kg

DRUGS (7)
  1. TAXOTERE [Suspect]
     Indication: NASOPHARYNGEAL CANCER RECURRENT
     Route: 041
     Dates: start: 20050818, end: 20050818
  2. TAXOTERE [Suspect]
     Route: 041
     Dates: start: 20050825, end: 20050825
  3. BRIPLATIN [Concomitant]
     Indication: NASOPHARYNGEAL CANCER RECURRENT
     Route: 042
     Dates: start: 20050706, end: 20050706
  4. BRIPLATIN [Concomitant]
     Route: 042
     Dates: start: 20050802, end: 20050802
  5. FLUOROURACIL [Concomitant]
     Indication: NASOPHARYNGEAL CANCER RECURRENT
     Route: 042
     Dates: start: 20050706, end: 20050710
  6. FLUOROURACIL [Concomitant]
     Route: 042
     Dates: start: 20050802, end: 20050806
  7. RADIOTHERAPY [Concomitant]
     Indication: NASOPHARYNGEAL CANCER RECURRENT
     Dosage: DOSE: 60 GY/TOTAL
     Dates: start: 20050818, end: 20051003

REACTIONS (12)
  - ARTERIAL HAEMORRHAGE [None]
  - ASPIRATION [None]
  - HEADACHE [None]
  - LOSS OF CONSCIOUSNESS [None]
  - NASOPHARYNGEAL DISORDER [None]
  - NECROSIS [None]
  - OSTEOMYELITIS [None]
  - POSTOPERATIVE WOUND COMPLICATION [None]
  - PYREXIA [None]
  - SHOCK HAEMORRHAGIC [None]
  - STAPHYLOCOCCAL INFECTION [None]
  - WOUND INFECTION STAPHYLOCOCCAL [None]
